FAERS Safety Report 6003960-0 (Version None)
Quarter: 2008Q4

REPORT INFORMATION
  Report Type: 
  Country: None (occurrence: None)
  Receive Date: 20081212
  Receipt Date: 20081204
  Transmission Date: 20090506
  Serious: Yes (Other)
  Sender: FDA-Public Use
  Company Number: 2008SP024764

PATIENT
  Age: 86 Year
  Sex: Male

DRUGS (5)
  1. DIAFUSOR (GLYCERYL TRINITRATE) (GLYCERYLTRINITRATE) [Suspect]
     Indication: DRUG USE FOR UNKNOWN INDICATION
     Dosage: 10 MG;QD;CUT
  2. TANAKAN [Concomitant]
  3. TEMESTA [Concomitant]
  4. HYPERIUM [Concomitant]
  5. HYZAAR [Concomitant]

REACTIONS (2)
  - COMA [None]
  - PANCYTOPENIA [None]
